FAERS Safety Report 12779418 (Version 2)
Quarter: 2016Q4

REPORT INFORMATION
  Report Type: Spontaneous
  Country: US (occurrence: US)
  Receive Date: 20160926
  Receipt Date: 20161216
  Transmission Date: 20170207
  Serious: No
  Sender: FDA-Public Use
  Company Number: US-ASTRAZENECA-2016SF00424

PATIENT
  Age: 828 Month
  Sex: Male
  Weight: 142.4 kg

DRUGS (2)
  1. BYDUREON [Suspect]
     Active Substance: EXENATIDE
     Indication: TYPE 2 DIABETES MELLITUS
     Route: 065
     Dates: start: 201606
  2. PLAVIX [Concomitant]
     Active Substance: CLOPIDOGREL BISULFATE
     Indication: INTRACARDIAC THROMBUS
     Route: 048
     Dates: start: 201608

REACTIONS (3)
  - Syringe issue [Unknown]
  - Injection site haemorrhage [Recovered/Resolved]
  - Product reconstitution issue [Unknown]

NARRATIVE: CASE EVENT DATE: 201607
